FAERS Safety Report 8546943-9 (Version None)
Quarter: 2012Q3

REPORT INFORMATION
  Report Type: 
  Country: None (occurrence: None)
  Receive Date: 20120727
  Receipt Date: 20120120
  Transmission Date: 20120928
  Serious: No
  Sender: FDA-Public Use
  Company Number: US-ASTRAZENECA-2012SE04411

PATIENT
  Age: 64 Year
  Sex: Male
  Weight: 79.4 kg

DRUGS (5)
  1. LISINOPRIL [Concomitant]
  2. SEROQUEL [Suspect]
     Indication: MANIA
     Route: 048
  3. AMLODIPINE [Concomitant]
  4. METOPROLOL TARTRATE [Concomitant]
  5. SEROQUEL [Suspect]
     Indication: DEPRESSION
     Route: 048

REACTIONS (2)
  - FATIGUE [None]
  - WRONG TECHNIQUE IN DRUG USAGE PROCESS [None]
